FAERS Safety Report 7425320-8 (Version None)
Quarter: 2011Q2

REPORT INFORMATION
  Report Type: 
  Country: None (occurrence: None)
  Receive Date: 20110420
  Receipt Date: 20110411
  Transmission Date: 20111010
  Serious: Yes (Hospitalization, Other)
  Sender: FDA-Public Use
  Company Number: PHHY2010US68040

PATIENT
  Sex: Female

DRUGS (14)
  1. NEXIUM [Concomitant]
     Dosage: UNK
  2. VITAMIN D [Concomitant]
     Dosage: UNK
  3. NORATIN [Concomitant]
     Dosage: UNK
  4. RECLAST [Concomitant]
     Dosage: UNK
  5. PROVIGIL [Concomitant]
     Dosage: UNK
  6. ALBUTEROL [Concomitant]
     Dosage: UNK
  7. RESTASIS [Concomitant]
     Dosage: UNK
  8. MULTI-VITAMINS [Concomitant]
     Dosage: UNK
  9. KLONOPIN [Concomitant]
     Dosage: UNK
  10. GILENYA [Suspect]
     Indication: MULTIPLE SCLEROSIS
     Dosage: 0.5 MG, QD
     Route: 048
     Dates: start: 20101008
  11. ANTEROVERT [Concomitant]
     Dosage: UNK
  12. BACLOFEN [Concomitant]
     Dosage: UNK
  13. CALCIUM [Concomitant]
     Dosage: UNK
  14. TOPROL-XL [Interacting]
     Dosage: 25 MG, BID
     Dates: end: 20101130

REACTIONS (9)
  - NAUSEA [None]
  - VIRAL INFECTION [None]
  - ALOPECIA [None]
  - HEART RATE DECREASED [None]
  - VOMITING [None]
  - DRUG INTERACTION [None]
  - BRONCHITIS [None]
  - HEART RATE IRREGULAR [None]
  - FALL [None]
